FAERS Safety Report 10597449 (Version 2)
Quarter: 2014Q4

REPORT INFORMATION
  Report Type: Spontaneous
  Country: US (occurrence: None)
  Receive Date: 20141119
  Receipt Date: 20141202
  Transmission Date: 20150529
  Serious: Yes (Death, Life-Threatening, Hospitalization, Other)
  Sender: FDA-Public Use
  Company Number: AMAG201400435

PATIENT
  Age: 71 Year
  Sex: Male

DRUGS (1)
  1. FERAHEME [Suspect]
     Active Substance: FERUMOXYTOL NON-STOICHIOMETRIC MAGNETITE
     Dosage: SINGLE, IV PUSH
     Route: 042
     Dates: start: 20140924, end: 20140924

REACTIONS (10)
  - Cerebrovascular accident [None]
  - Anaphylactic reaction [None]
  - Hypotension [None]
  - Pulse absent [None]
  - Cardiac arrest [None]
  - Arrhythmia [None]
  - Dyspnoea [None]
  - Unresponsive to stimuli [None]
  - Paraesthesia [None]
  - Blindness [None]

NARRATIVE: CASE EVENT DATE: 201409
